FAERS Safety Report 13276683 (Version 1)
Quarter: 2017Q1

REPORT INFORMATION
  Report Type: Spontaneous
  Country: US (occurrence: US)
  Receive Date: 20170228
  Receipt Date: 20170228
  Transmission Date: 20170428
  Serious: Yes (Hospitalization)
  Sender: FDA-Public Use
  Company Number: None

PATIENT
  Age: 48 Year
  Sex: Male

DRUGS (1)
  1. APIXABAN [Suspect]
     Active Substance: APIXABAN

REACTIONS (8)
  - Dysarthria [None]
  - Gait disturbance [None]
  - Headache [None]
  - Dizziness [None]
  - Abasia [None]
  - Ischaemic stroke [None]
  - Cerebellar haemorrhage [None]
  - Diplopia [None]

NARRATIVE: CASE EVENT DATE: 20160804
